FAERS Safety Report 5848265-3 (Version None)
Quarter: 2008Q3

REPORT INFORMATION
  Report Type: 
  Country: None (occurrence: None)
  Receive Date: 20080818
  Receipt Date: 20080808
  Transmission Date: 20090109
  Serious: Yes (Hospitalization)
  Sender: FDA-Public Use
  Company Number: JP-ASTRAZENECA-2008AP04643

PATIENT
  Age: 79 Year
  Sex: Male
  Weight: 47 kg

DRUGS (4)
  1. ZOLADEX [Suspect]
     Indication: PROSTATE CANCER
     Route: 058
     Dates: start: 20041223, end: 20080414
  2. CASODEX [Concomitant]
     Indication: PROSTATE CANCER
     Route: 048
     Dates: start: 20041223, end: 20080612
  3. DEPAS [Concomitant]
     Indication: INSOMNIA
     Route: 048
     Dates: start: 20050121
  4. BLOPRESS [Concomitant]
     Indication: HYPERTENSION
     Route: 048
     Dates: start: 20050318, end: 20080612

REACTIONS (1)
  - INJECTION SITE ABSCESS [None]
